FAERS Safety Report 5703277-5 (Version None)
Quarter: 2008Q2

REPORT INFORMATION
  Report Type: 
  Country: None (occurrence: None)
  Receive Date: 20080411
  Receipt Date: 20080328
  Transmission Date: 20081010
  Serious: Yes (Death)
  Sender: FDA-Public Use
  Company Number: AR-ROCHE-555812

PATIENT
  Sex: Male

DRUGS (2)
  1. CAPECITABINE [Suspect]
     Indication: COLON CANCER
     Route: 048
     Dates: start: 20071204, end: 20080208
  2. OXALIPLATINO [Concomitant]

REACTIONS (1)
  - ACUTE MYOCARDIAL INFARCTION [None]
